FAERS Safety Report 5249756-9 (Version None)
Quarter: 2007Q1

REPORT INFORMATION
  Report Type: 
  Country: None (occurrence: None)
  Receive Date: 20070228
  Receipt Date: 20070125
  Transmission Date: 20070707
  Serious: No
  Sender: FDA-Public Use
  Company Number: US-GLAXOSMITHKLINE-A0625203A

PATIENT
  Age: 46 Year
  Sex: Female

DRUGS (9)
  1. IMITREX [Suspect]
     Indication: MIGRAINE
     Dosage: 6MGK PER DAY
     Route: 058
     Dates: start: 20060901
  2. IMITREX [Suspect]
     Route: 045
     Dates: start: 20060801
  3. AXERT [Concomitant]
  4. OXYCODONE HCL [Concomitant]
  5. ZANTAC [Concomitant]
  6. DEPAKOTE [Concomitant]
  7. COVERA-HS [Concomitant]
  8. SOMA [Concomitant]
  9. PERCOCET [Concomitant]

REACTIONS (2)
  - DRUG INEFFECTIVE [None]
  - PHARMACEUTICAL PRODUCT COMPLAINT [None]
